FAERS Safety Report 16319827 (Version 3)
Quarter: 2020Q4

REPORT INFORMATION
  Report Type: Spontaneous
  Country: FR (occurrence: FR)
  Receive Date: 20190516
  Receipt Date: 20201127
  Transmission Date: 20210113
  Serious: Yes (Other)
  Sender: FDA-Public Use
  Company Number: PHHY2019FR107810

PATIENT
  Sex: Female
  Weight: 73 kg

DRUGS (2)
  1. TACROLIMUS. [Suspect]
     Active Substance: TACROLIMUS
     Indication: IMMUNOSUPPRESSION
     Dosage: 13 MG, QD (MODIFIED-RELEASE CAPSULE, HARD)
     Route: 048
     Dates: start: 20171013, end: 20180716
  2. TACROLIMUS. [Suspect]
     Active Substance: TACROLIMUS
     Dosage: 20 MG, QD (MODIFIED-RELEASE CAPSULE, HARD)
     Route: 048
     Dates: start: 20180717, end: 20190806

REACTIONS (4)
  - Transplant dysfunction [Not Recovered/Not Resolved]
  - Maternal exposure during pregnancy [Unknown]
  - Gestational diabetes [Not Recovered/Not Resolved]
  - Cystitis [Recovered/Resolved]

NARRATIVE: CASE EVENT DATE: 2018
